FAERS Safety Report 12864797 (Version 3)
Quarter: 2018Q2

REPORT INFORMATION
  Report Type: Spontaneous
  Country: US (occurrence: US)
  Receive Date: 20161020
  Receipt Date: 20180423
  Transmission Date: 20180711
  Serious: Yes (Other)
  Sender: FDA-Public Use
  Company Number: US-AMGEN-USASP2016142469

PATIENT
  Age: 49 Year
  Sex: Female

DRUGS (3)
  1. ENBREL [Suspect]
     Active Substance: ETANERCEPT
     Indication: RHEUMATOID ARTHRITIS
     Dosage: 50 MG, QWK
     Route: 065
     Dates: start: 2018
  2. ENBREL [Suspect]
     Active Substance: ETANERCEPT
     Indication: OSTEOARTHRITIS
     Dosage: 50 MG, QWK
     Route: 065
  3. ENBREL [Suspect]
     Active Substance: ETANERCEPT
     Indication: ARTHRITIS
     Dosage: 50 MG, QWK
     Route: 065
     Dates: start: 201609

REACTIONS (21)
  - Hip surgery [Recovered/Resolved]
  - Blood calcium decreased [Unknown]
  - Anaemia [Unknown]
  - Neck surgery [Recovered/Resolved]
  - Neck pain [Unknown]
  - Rheumatoid arthritis [Unknown]
  - Pain in extremity [Unknown]
  - Fatigue [Unknown]
  - Infection [Unknown]
  - Spinal operation [Unknown]
  - Pain [Unknown]
  - Arthralgia [Unknown]
  - General physical health deterioration [Unknown]
  - Skin cancer [Unknown]
  - Off label use [Unknown]
  - Staphylococcal infection [Unknown]
  - Blood magnesium decreased [Unknown]
  - Vitamin D abnormal [Unknown]
  - Musculoskeletal disorder [Unknown]
  - Accident [Recovered/Resolved]
  - Localised infection [Unknown]

NARRATIVE: CASE EVENT DATE: 2016
